FAERS Safety Report 16170214 (Version 1)
Quarter: 2019Q2

REPORT INFORMATION
  Report Type: Spontaneous
  Country: US (occurrence: US)
  Receive Date: 20190408
  Receipt Date: 20190408
  Transmission Date: 20190711
  Serious: No
  Sender: FDA-Public Use
  Company Number: US-BAYER-2019-060446

PATIENT
  Age: 14 Year
  Sex: Female

DRUGS (2)
  1. RASUVO [Concomitant]
     Active Substance: METHOTREXATE SODIUM
     Dosage: UNK
     Dates: start: 20190215
  2. ALEVE [Suspect]
     Active Substance: NAPROXEN SODIUM
     Dosage: UNK
     Dates: start: 20190215

REACTIONS (2)
  - Vomiting [None]
  - Nausea [Unknown]

NARRATIVE: CASE EVENT DATE: 20190218
